FAERS Safety Report 18927868 (Version 1)
Quarter: 2021Q1

REPORT INFORMATION
  Report Type: Spontaneous
  Country: US (occurrence: US)
  Receive Date: 20210223
  Receipt Date: 20210223
  Transmission Date: 20210420
  Serious: Yes (Other)
  Sender: FDA-Public Use
  Company Number: US-SLATE RUN PHARMACEUTICALS-21US000401

PATIENT

DRUGS (6)
  1. OXYGEN. [Concomitant]
     Active Substance: OXYGEN
     Indication: DYSPNOEA
     Route: 045
  2. STEROIDS [Suspect]
     Active Substance: UNSPECIFIED INGREDIENT
     Indication: DYSPNOEA
     Route: 065
  3. INH [Concomitant]
     Active Substance: ISONIAZID
     Indication: DISSEMINATED TUBERCULOSIS
     Route: 065
  4. RIF [RIFAMPICIN] [Concomitant]
     Indication: DISSEMINATED TUBERCULOSIS
     Route: 065
  5. AZITHROMYCIN USP [Suspect]
     Active Substance: AZITHROMYCIN
     Indication: LUNG OPACITY
     Route: 065
  6. EMB [Concomitant]
     Active Substance: ETHAMBUTOL HYDROCHLORIDE
     Indication: DISSEMINATED TUBERCULOSIS
     Route: 065

REACTIONS (5)
  - Tuberculosis of central nervous system [Unknown]
  - Abortion spontaneous [Unknown]
  - Immune reconstitution inflammatory syndrome associated tuberculosis [Unknown]
  - Tuberculosis of eye [Unknown]
  - Maternal exposure during pregnancy [Recovered/Resolved]
